FAERS Safety Report 23487281 (Version 1)
Quarter: 2024Q1

REPORT INFORMATION
  Report Type: Other
  Country: CN (occurrence: None)
  Receive Date: 20240206
  Receipt Date: 20240206
  Transmission Date: 20240409
  Serious: Yes (Other)
  Sender: FDA-Public Use
  Company Number: CN-ROCHE-3502191

PATIENT

DRUGS (32)
  1. BEVACIZUMAB [Suspect]
     Active Substance: BEVACIZUMAB
     Indication: Colorectal cancer metastatic
     Route: 042
  2. BEVACIZUMAB [Suspect]
     Active Substance: BEVACIZUMAB
     Indication: Non-small cell lung cancer metastatic
     Route: 050
  3. BEVACIZUMAB [Suspect]
     Active Substance: BEVACIZUMAB
     Indication: Hepatocellular carcinoma
     Route: 033
  4. BEVACIZUMAB [Suspect]
     Active Substance: BEVACIZUMAB
     Indication: Cervix cancer metastatic
     Route: 038
  5. BEVACIZUMAB [Suspect]
     Active Substance: BEVACIZUMAB
     Indication: Female reproductive neoplasm
     Route: 037
  6. BEVACIZUMAB [Suspect]
     Active Substance: BEVACIZUMAB
     Indication: Breast cancer metastatic
  7. BEVACIZUMAB [Suspect]
     Active Substance: BEVACIZUMAB
     Indication: Appendix cancer
  8. BEVACIZUMAB [Suspect]
     Active Substance: BEVACIZUMAB
     Indication: Neoplasm malignant
  9. BEVACIZUMAB [Suspect]
     Active Substance: BEVACIZUMAB
     Indication: Pleural mesothelioma
  10. BEVACIZUMAB [Suspect]
     Active Substance: BEVACIZUMAB
     Indication: Bone sarcoma
  11. BEVACIZUMAB [Suspect]
     Active Substance: BEVACIZUMAB
     Indication: Acute myeloid leukaemia
  12. BEVACIZUMAB [Suspect]
     Active Substance: BEVACIZUMAB
     Indication: Small intestine carcinoma
  13. BEVACIZUMAB [Suspect]
     Active Substance: BEVACIZUMAB
     Indication: Small intestine carcinoma
  14. BEVACIZUMAB [Suspect]
     Active Substance: BEVACIZUMAB
     Indication: Pancreatic carcinoma
  15. BEVACIZUMAB [Suspect]
     Active Substance: BEVACIZUMAB
     Indication: Malignant mediastinal neoplasm
  16. BEVACIZUMAB [Suspect]
     Active Substance: BEVACIZUMAB
     Indication: Malignant melanoma
  17. DENOSUMAB [Concomitant]
     Active Substance: DENOSUMAB
     Indication: Colorectal cancer metastatic
  18. DENOSUMAB [Concomitant]
     Active Substance: DENOSUMAB
     Indication: Non-small cell lung cancer metastatic
  19. DENOSUMAB [Concomitant]
     Active Substance: DENOSUMAB
     Indication: Hepatocellular carcinoma
  20. DENOSUMAB [Concomitant]
     Active Substance: DENOSUMAB
     Indication: Cervix cancer metastatic
  21. DENOSUMAB [Concomitant]
     Active Substance: DENOSUMAB
     Indication: Female reproductive neoplasm
  22. DENOSUMAB [Concomitant]
     Active Substance: DENOSUMAB
     Indication: Breast cancer metastatic
  23. DENOSUMAB [Concomitant]
     Active Substance: DENOSUMAB
     Indication: Appendix cancer
  24. DENOSUMAB [Concomitant]
     Active Substance: DENOSUMAB
     Indication: Neoplasm malignant
  25. DENOSUMAB [Concomitant]
     Active Substance: DENOSUMAB
     Indication: Pleural mesothelioma
  26. DENOSUMAB [Concomitant]
     Active Substance: DENOSUMAB
     Indication: Bone sarcoma
  27. DENOSUMAB [Concomitant]
     Active Substance: DENOSUMAB
     Indication: Acute myeloid leukaemia
  28. DENOSUMAB [Concomitant]
     Active Substance: DENOSUMAB
     Indication: Small intestine carcinoma
  29. DENOSUMAB [Concomitant]
     Active Substance: DENOSUMAB
     Indication: Small intestine carcinoma
  30. DENOSUMAB [Concomitant]
     Active Substance: DENOSUMAB
     Indication: Pancreatic carcinoma
  31. DENOSUMAB [Concomitant]
     Active Substance: DENOSUMAB
     Indication: Malignant mediastinal neoplasm
  32. DENOSUMAB [Concomitant]
     Active Substance: DENOSUMAB
     Indication: Malignant melanoma

REACTIONS (5)
  - Off label use [Unknown]
  - Off label use [Unknown]
  - Underdose [Unknown]
  - Proteinuria [Unknown]
  - Hypertension [Unknown]
